FAERS Safety Report 9114936 (Version 1)
Quarter: 2013Q1

REPORT INFORMATION
  Report Type: Spontaneous
  Country: US (occurrence: None)
  Receive Date: 20130220
  Receipt Date: 20130220
  Transmission Date: 20140127
  Serious: Yes (Other)
  Sender: FDA-Public Use
  Company Number: None

PATIENT
  Sex: Male

DRUGS (2)
  1. PEGASYS [Suspect]
     Indication: HEPATITIS C
     Route: 058
     Dates: start: 20130124, end: 20130213
  2. RIBAPAK [Suspect]
     Indication: HEPATITIS C
     Route: 048
     Dates: start: 20130124, end: 20130213

REACTIONS (7)
  - Constipation [None]
  - Nausea [None]
  - Headache [None]
  - Chills [None]
  - Cough [None]
  - Joint swelling [None]
  - Rash [None]
